FAERS Safety Report 24078270 (Version 2)
Quarter: 2024Q3

REPORT INFORMATION
  Report Type: Spontaneous
  Country: IN (occurrence: IN)
  Receive Date: 20240711
  Receipt Date: 20240904
  Transmission Date: 20241017
  Serious: Yes (Hospitalization, Other)
  Sender: PFIZER
  Company Number: IN-PFIZER INC-PV202400089211

PATIENT
  Age: 74 Year
  Sex: Female

DRUGS (3)
  1. CRIZOTINIB [Suspect]
     Active Substance: CRIZOTINIB
     Indication: Lung adenocarcinoma
     Dosage: 250 MG, 2X/DAY
     Route: 048
     Dates: start: 20231210
  2. CRIZOTINIB [Suspect]
     Active Substance: CRIZOTINIB
     Dosage: 200 MG, 2X/DAY
  3. CRIZOTINIB [Suspect]
     Active Substance: CRIZOTINIB
     Dosage: 200 MG, 1X/DAY
     Route: 048
     Dates: start: 20240526

REACTIONS (11)
  - Dyspnoea [Unknown]
  - Bradycardia [Unknown]
  - Aspiration pleural cavity abnormal [Unknown]
  - Echocardiogram abnormal [Unknown]
  - Renal impairment [Unknown]
  - Pancreatitis acute [Recovered/Resolved]
  - Cholelithiasis [Unknown]
  - Pleural effusion [Unknown]
  - Neoplasm progression [Unknown]
  - Pyrexia [Recovering/Resolving]
  - Off label use [Unknown]

NARRATIVE: CASE EVENT DATE: 20240305
